FAERS Safety Report 5020851-2 (Version None)
Quarter: 2006Q2

REPORT INFORMATION
  Report Type: 
  Country: None (occurrence: None)
  Receive Date: 20060602
  Receipt Date: 20060519
  Transmission Date: 20061013
  Serious: Yes (Hospitalization)
  Sender: FDA-Public Use
  Company Number: 2006S1000135

PATIENT
  Age: 63 Year
  Sex: Male
  Weight: 66.2252 kg

DRUGS (4)
  1. LUXIQ [Suspect]
     Indication: DANDRUFF
     Dosage: 0.12 PCT; X1; TOP
     Route: 061
     Dates: start: 20041116, end: 20041116
  2. LUXIQ [Suspect]
     Indication: DANDRUFF
     Dosage: 0.12 PCT; X1; TOP
     Route: 061
     Dates: start: 20050301, end: 20050501
  3. LUXIQ [Suspect]
     Indication: DANDRUFF
     Dosage: 0.12 PCT; X1; TOP
     Route: 061
     Dates: start: 20050501
  4. LIPITOR [Concomitant]

REACTIONS (2)
  - CAROTID ARTERY DISSECTION [None]
  - CEREBROVASCULAR ACCIDENT [None]
